FAERS Safety Report 16804469 (Version 1)
Quarter: 2019Q3

REPORT INFORMATION
  Report Type: Spontaneous
  Country: US (occurrence: US)
  Receive Date: 20190913
  Receipt Date: 20190913
  Transmission Date: 20191005
  Serious: No
  Sender: FDA-Public Use
  Company Number: US-PFIZER INC-2019395027

PATIENT
  Age: 61 Year

DRUGS (14)
  1. OXYCODONE [Suspect]
     Active Substance: OXYCODONE
     Dosage: UNK
  2. LINCOMYCIN HCL [Suspect]
     Active Substance: LINCOMYCIN HYDROCHLORIDE
     Dosage: UNK
  3. PREGABALIN. [Suspect]
     Active Substance: PREGABALIN
     Dosage: UNK
  4. PROMETHAZINE HCL [Suspect]
     Active Substance: PROMETHAZINE HYDROCHLORIDE
     Dosage: UNK
  5. CODEINE [Suspect]
     Active Substance: CODEINE
     Dosage: UNK
  6. QUETIAPINE. [Suspect]
     Active Substance: QUETIAPINE
     Dosage: UNK
  7. BEE VENOM [Suspect]
     Active Substance: APIS MELLIFERA VENOM
     Dosage: UNK
  8. CEPHALEXIN [CEFALEXIN] [Suspect]
     Active Substance: CEPHALEXIN
     Dosage: UNK
  9. AMOXICILLIN + CLAV. POTASSIUM [Suspect]
     Active Substance: AMOXICILLIN\CLAVULANATE POTASSIUM
     Dosage: UNK
  10. FLUOXETINE HCL [Suspect]
     Active Substance: FLUOXETINE HYDROCHLORIDE
     Dosage: UNK
  11. CLINDAMYCIN. [Suspect]
     Active Substance: CLINDAMYCIN
     Dosage: UNK
  12. METOCLOPRAMIDE HCL [Suspect]
     Active Substance: METOCLOPRAMIDE HYDROCHLORIDE
     Dosage: UNK
  13. ACETAMINOPHEN;HYDROCODONE [Suspect]
     Active Substance: ACETAMINOPHEN\HYDROCODONE
     Dosage: UNK
  14. PROCHLORPERAZINE EDISYLATE. [Suspect]
     Active Substance: PROCHLORPERAZINE EDISYLATE
     Dosage: UNK

REACTIONS (1)
  - Drug hypersensitivity [Unknown]
